FAERS Safety Report 17508377 (Version 8)
Quarter: 2020Q2

REPORT INFORMATION
  Report Type: Spontaneous
  Country: JP (occurrence: JP)
  Receive Date: 20200306
  Receipt Date: 20200407
  Transmission Date: 20200713
  Serious: Yes (Life-Threatening, Hospitalization, Other)
  Sender: FDA-Public Use
  Company Number: JP-ABBVIE-18K-087-2422905-00

PATIENT
  Age: 64 Year
  Sex: Female

DRUGS (12)
  1. DUODOPA [Suspect]
     Active Substance: CARBIDOPA\LEVODOPA
     Dosage: MD: 7 ML?CD: 3.3 ML/HR ? 16 HRS?ED: 1 ML/UNIT ? 2
     Route: 050
     Dates: start: 20190324, end: 20200222
  2. DOMPERIDONE [Concomitant]
     Active Substance: DOMPERIDONE
     Indication: CONSTIPATION
     Route: 048
  3. MAGNESIUM OXIDE. [Concomitant]
     Active Substance: MAGNESIUM OXIDE
     Indication: CONSTIPATION
     Route: 048
  4. SENNOSIDES A/B [Concomitant]
     Indication: CONSTIPATION
     Route: 048
  5. SOLIFENACIN SUCCINATE. [Concomitant]
     Active Substance: SOLIFENACIN SUCCINATE
     Indication: HYPERTONIC BLADDER
     Route: 048
  6. ETIZOLAM [Concomitant]
     Active Substance: ETIZOLAM
     Indication: DEPRESSION
  7. ETIZOLAM [Concomitant]
     Active Substance: ETIZOLAM
     Indication: PARKINSON^S DISEASE
     Route: 048
  8. FUROSEMIDE. [Concomitant]
     Active Substance: FUROSEMIDE
     Indication: OEDEMA PERIPHERAL
     Route: 048
  9. DUODOPA [Suspect]
     Active Substance: CARBIDOPA\LEVODOPA
     Indication: PARKINSON^S DISEASE
     Dosage: MD: 4 ML?CD: 3.1 ML/HR ? 16 HRS?ED: 1 ML/UNIT
     Route: 050
     Dates: start: 20180621, end: 20180626
  10. ROTIGOTINE [Concomitant]
     Active Substance: ROTIGOTINE
     Indication: PARKINSON^S DISEASE
     Route: 062
     Dates: start: 20180630
  11. DUODOPA [Suspect]
     Active Substance: CARBIDOPA\LEVODOPA
     Dosage: MD: 7 ML?CD: 3.1 ML/HR ? 16 HRS?ED: 1 ML/UNIT ? 2
     Route: 050
     Dates: start: 20180630, end: 20190323
  12. REBAMIPIDE [Concomitant]
     Active Substance: REBAMIPIDE
     Indication: CONSTIPATION
     Route: 048

REACTIONS (26)
  - Haemorrhage [Unknown]
  - Speech disorder [Unknown]
  - Malaise [Unknown]
  - Pyrexia [Unknown]
  - Medical device site haemorrhage [Unknown]
  - Blood pressure decreased [Unknown]
  - Abdominal pain [Unknown]
  - Medical device site ulcer [Unknown]
  - Shock [Unknown]
  - Palpitations [Unknown]
  - Device issue [Unknown]
  - Vascular pseudoaneurysm ruptured [Unknown]
  - Gait disturbance [Unknown]
  - Accidental overdose [Unknown]
  - Vomiting [Unknown]
  - Loss of consciousness [Unknown]
  - Impaired quality of life [Unknown]
  - Intentional product misuse [Recovered/Resolved]
  - Stoma site pain [Unknown]
  - Aneurysm [Unknown]
  - Gastric haemorrhage [Unknown]
  - Device kink [Unknown]
  - Anaemia [Unknown]
  - Therapeutic product effect incomplete [Unknown]
  - Diarrhoea [Unknown]
  - Device kink [Recovered/Resolved]

NARRATIVE: CASE EVENT DATE: 20180626
